FAERS Safety Report 5803527-0 (Version None)
Quarter: 2008Q3

REPORT INFORMATION
  Report Type: 
  Country: None (occurrence: None)
  Receive Date: 20080708
  Receipt Date: 20080707
  Transmission Date: 20090109
  Serious: Yes (Hospitalization, Other)
  Sender: FDA-Public Use
  Company Number: DE-WYE-G01826508

PATIENT
  Sex: Male

DRUGS (2)
  1. VENLAFAXINE HCL [Suspect]
     Route: 048
  2. MIRTAZAPINE [Suspect]
     Route: 048

REACTIONS (2)
  - PUPIL FIXED [None]
  - SEROTONIN SYNDROME [None]
